FAERS Safety Report 8196505-0 (Version None)
Quarter: 2012Q1

REPORT INFORMATION
  Report Type: 
  Country: None (occurrence: None)
  Receive Date: 20120309
  Receipt Date: 20120227
  Transmission Date: 20120608
  Serious: No
  Sender: FDA-Public Use
  Company Number: US-B.I. PHARMACEUTICALS,INC./RIDGEFIELD-2012-BP-03729BP

PATIENT
  Sex: Female

DRUGS (4)
  1. ENALAPRIL MALEATE [Concomitant]
     Indication: HYPERTENSION
  2. DILTIAZEM [Concomitant]
     Indication: HYPERTENSION
  3. SIMVASTATIN [Concomitant]
     Indication: BLOOD CHOLESTEROL INCREASED
  4. PRADAXA [Suspect]
     Indication: ATRIAL FIBRILLATION
     Dosage: 150 MG
     Route: 048
     Dates: start: 20111003

REACTIONS (2)
  - DYSPEPSIA [None]
  - VISION BLURRED [None]
